FAERS Safety Report 7513891-2 (Version None)
Quarter: 2011Q2

REPORT INFORMATION
  Report Type: 
  Country: None (occurrence: None)
  Receive Date: 20110531
  Receipt Date: 20110517
  Transmission Date: 20111010
  Serious: Yes (Hospitalization)
  Sender: FDA-Public Use
  Company Number: PHHY2011SE43150

PATIENT
  Sex: Male

DRUGS (8)
  1. KAVEPENIN [Concomitant]
     Dosage: UNK UKN, UNK
  2. SIMVASTATIN [Concomitant]
     Dosage: UNK UKN, UNK
  3. TROMBYL [Concomitant]
     Dosage: UNK UKN, UNK
  4. TEGRETOL [Suspect]
     Indication: EPILEPSY
     Dosage: 200 MG, DAILY
     Route: 048
     Dates: start: 20101201, end: 20110401
  5. PLAVIX [Concomitant]
     Dosage: UNK UKN, UNK
  6. SELOKEN ZOC [Concomitant]
     Dosage: UNK UKN, UNK
  7. RAMIPRIL [Concomitant]
     Dosage: UNK UKN, UNK
  8. NITROLINGUAL [Concomitant]
     Dosage: UNK UKN, UNK

REACTIONS (3)
  - TIC [None]
  - MUSCLE TWITCHING [None]
  - MUSCLE CONTRACTIONS INVOLUNTARY [None]
